FAERS Safety Report 16907981 (Version 1)
Quarter: 2019Q4

REPORT INFORMATION
  Report Type: Spontaneous
  Country: US (occurrence: US)
  Receive Date: 20190820
  Receipt Date: 20190820
  Transmission Date: 20200122
  Serious: Yes (Hospitalization)
  Sender: FDA-Public Use
  Company Number: None

PATIENT
  Age: 56 Year
  Sex: Male
  Weight: 97.07 kg

DRUGS (1)
  1. DILTIAZEM. [Suspect]
     Active Substance: DILTIAZEM
     Indication: SUPRAVENTRICULAR TACHYCARDIA
     Route: 048
     Dates: start: 20190508, end: 20190511

REACTIONS (3)
  - Bradycardia [None]
  - Dyspnoea exertional [None]
  - Dizziness postural [None]

NARRATIVE: CASE EVENT DATE: 20190513
